FAERS Safety Report 14677600 (Version 1)
Quarter: 2018Q1

REPORT INFORMATION
  Report Type: Spontaneous
  Country: US (occurrence: US)
  Receive Date: 20180324
  Receipt Date: 20180324
  Transmission Date: 20180509
  Serious: Yes (Death)
  Sender: FDA-Public Use
  Company Number: None

PATIENT
  Age: 45 Year
  Sex: Male

DRUGS (2)
  1. GLEOSTINE [Suspect]
     Active Substance: LOMUSTINE
     Indication: BRAIN NEOPLASM MALIGNANT
     Dosage: FREQUENCY - EVERY 6 WEEKS
     Route: 048
     Dates: start: 20171214
  2. GLEOSTINE [Suspect]
     Active Substance: LOMUSTINE
     Indication: BRAIN NEOPLASM MALIGNANT
     Dosage: FREQUENCY - EVERY 6 WEEKS
     Route: 048
     Dates: start: 20171214

REACTIONS (1)
  - Death [None]

NARRATIVE: CASE EVENT DATE: 20180303
